FAERS Safety Report 4596981-6 (Version None)
Quarter: 2005Q1

REPORT INFORMATION
  Report Type: 
  Country: None (occurrence: None)
  Receive Date: 20050228
  Receipt Date: 20050214
  Transmission Date: 20050727
  Serious: Yes (Hospitalization)
  Sender: FDA-Public Use
  Company Number: 2005032368

PATIENT
  Age: 83 Year
  Sex: Female
  Weight: 55.7924 kg

DRUGS (4)
  1. BEXTRA [Suspect]
     Indication: ARTHRITIS
     Dosage: ORAL
     Route: 048
     Dates: start: 20030101, end: 20031201
  2. ISRADIPINE [Concomitant]
  3. PRAVASTATIN SODIUM [Concomitant]
  4. ATENOLOL [Concomitant]

REACTIONS (3)
  - CHEST PAIN [None]
  - RECTAL HAEMORRHAGE [None]
  - ULCER HAEMORRHAGE [None]
